FAERS Safety Report 4890043-6 (Version None)
Quarter: 2005Q4

REPORT INFORMATION
  Report Type: 
  Country: None (occurrence: None)
  Receive Date: 20051220
  Receipt Date: 20051017
  Transmission Date: 20060501
  Serious: Yes (Other)
  Sender: FDA-Public Use
  Company Number: 421571

PATIENT
  Sex: Female

DRUGS (3)
  1. BONIVA [Suspect]
     Indication: DRUG USE FOR UNKNOWN INDICATION
     Dosage: ORAL
     Route: 048
  2. SYNTHROID [Concomitant]
  3. ATENOLOL [Concomitant]

REACTIONS (5)
  - ABDOMINAL DISCOMFORT [None]
  - NAUSEA [None]
  - PAIN IN EXTREMITY [None]
  - PAIN IN JAW [None]
  - SHOULDER PAIN [None]
